FAERS Safety Report 6938738-4 (Version None)
Quarter: 2010Q3

REPORT INFORMATION
  Report Type: 
  Country: None (occurrence: None)
  Receive Date: 20100824
  Receipt Date: 20100816
  Transmission Date: 20110219
  Serious: Yes (Hospitalization)
  Sender: FDA-Public Use
  Company Number: PHHY2010FR47748

PATIENT
  Age: 68 Year
  Sex: Male

DRUGS (11)
  1. VOLTAREN [Suspect]
     Indication: MUSCULOSKELETAL PAIN
     Dosage: UNK
     Dates: start: 20100512, end: 20100530
  2. ARCOXIA [Suspect]
     Indication: OSTEOARTHRITIS
     Dosage: UNK
     Dates: start: 20100510, end: 20100530
  3. ALTIM [Suspect]
     Indication: OSTEOARTHRITIS
     Dosage: ONE INJECTION
     Dates: start: 20100528
  4. CRESTOR [Concomitant]
  5. COAPROVEL [Concomitant]
  6. PLAVIX [Concomitant]
  7. DIAMICRON [Concomitant]
  8. STAGID [Concomitant]
  9. OMEPRAZOLE [Concomitant]
     Dosage: UNK
  10. KARDEGIC [Concomitant]
  11. DILTIAZEM [Concomitant]

REACTIONS (5)
  - BLISTER [None]
  - HAEMATOMA [None]
  - PARAPLEGIA [None]
  - SKIN EXFOLIATION [None]
  - TOXIC EPIDERMAL NECROLYSIS [None]
